FAERS Safety Report 6790224-0 (Version None)
Quarter: 2010Q2

REPORT INFORMATION
  Report Type: 
  Country: None (occurrence: None)
  Receive Date: 20100624
  Receipt Date: 20100616
  Transmission Date: 20101027
  Serious: Yes (Death, Other)
  Sender: FDA-Public Use
  Company Number: US-PFIZER INC-2010073304

PATIENT
  Age: 47 Year
  Sex: Female

DRUGS (8)
  1. SERTRALINE HCL [Suspect]
     Dosage: UNK
  2. TRAZODONE HCL [Suspect]
     Dosage: UNK
  3. OXYMORPHONE [Suspect]
     Dosage: UNK
  4. METAMFETAMINE [Suspect]
     Dosage: UNK
  5. FLUOXETINE [Suspect]
     Dosage: UNK
  6. BUPROPION [Suspect]
     Dosage: UNK
  7. TRIMETHOPRIM [Suspect]
     Dosage: UNK
  8. CHLORPHENIRAMINE MALEATE [Suspect]
     Dosage: UNK

REACTIONS (3)
  - DRUG ABUSE [None]
  - DRUG TOXICITY [None]
  - PULMONARY CONGESTION [None]
